FAERS Safety Report 23613119 (Version 3)
Quarter: 2024Q1

REPORT INFORMATION
  Report Type: Spontaneous
  Country: AT (occurrence: AT)
  Receive Date: 20240308
  Receipt Date: 20240326
  Transmission Date: 20240410
  Serious: Yes (Other)
  Sender: FDA-Public Use
  Company Number: AT-BoehringerIngelheim-2024-BI-012884

PATIENT
  Age: 83 Year
  Sex: Female

DRUGS (2)
  1. SPEVIGO [Suspect]
     Active Substance: SPESOLIMAB-SBZO
     Indication: Pustular psoriasis
     Dates: start: 20230511
  2. SPEVIGO [Suspect]
     Active Substance: SPESOLIMAB-SBZO
     Dates: start: 20240116

REACTIONS (1)
  - Medical device site abscess [Unknown]

NARRATIVE: CASE EVENT DATE: 20240131
